FAERS Safety Report 20697660 (Version 2)
Quarter: 2022Q2

REPORT INFORMATION
  Report Type: Other
  Country: US (occurrence: None)
  Receive Date: 20220411
  Receipt Date: 20220624
  Transmission Date: 20220721
  Serious: Yes (Other)
  Sender: FDA-Public Use
  Company Number: US-ROCHE-3058245

PATIENT
  Age: 40 Year
  Sex: Female
  Weight: 54.480 kg

DRUGS (6)
  1. OCREVUS [Suspect]
     Active Substance: OCRELIZUMAB
     Indication: Multiple sclerosis
     Dosage: (PRESCRIBED AS 300 MG DAY 1 AND DAY 14 THEN 600 MG EVERY 6 MONTHS)?DATE OF TREATMENT: 10/NOV/2021, 2
     Route: 042
     Dates: start: 2020
  2. OCREVUS [Suspect]
     Active Substance: OCRELIZUMAB
     Route: 042
     Dates: start: 20200514, end: 20211110
  3. ZANAFLEX [Concomitant]
     Active Substance: TIZANIDINE HYDROCHLORIDE
  4. BUSPIRONE [Concomitant]
     Active Substance: BUSPIRONE HYDROCHLORIDE
  5. MODAFINIL [Concomitant]
     Active Substance: MODAFINIL
  6. TRULANCE [Concomitant]
     Active Substance: PLECANATIDE

REACTIONS (10)
  - Cellulitis [Unknown]
  - Uterine prolapse [Recovered/Resolved]
  - Rectocele [Recovered/Resolved]
  - Anxiety [Not Recovered/Not Resolved]
  - Gastrointestinal motility disorder [Not Recovered/Not Resolved]
  - Eye pain [Unknown]
  - Postoperative wound infection [Not Recovered/Not Resolved]
  - Wound dehiscence [Not Recovered/Not Resolved]
  - Blood urine present [Not Recovered/Not Resolved]
  - Urinary tract infection [Not Recovered/Not Resolved]

NARRATIVE: CASE EVENT DATE: 20210601
